FAERS Safety Report 7934122-5 (Version None)
Quarter: 2011Q4

REPORT INFORMATION
  Report Type: 
  Country: None (occurrence: None)
  Receive Date: 20111118
  Receipt Date: 20111108
  Transmission Date: 20120403
  Serious: Yes (Other)
  Sender: FDA-Public Use
  Company Number: 1000025263

PATIENT
  Age: 34 Year
  Sex: Female
  Weight: 65 kg

DRUGS (1)
  1. FOSFOMYCIN 9FOSFOMYCIN TROMETAMOL) (3 GRAM, GRANULATE) [Suspect]
     Indication: CYSTITIS
     Dosage: (3 GM, ONCE), ORAL
     Route: 048
     Dates: start: 20110816, end: 20110816

REACTIONS (2)
  - MATERNAL EXPOSURE DURING PREGNANCY [None]
  - ABORTION SPONTANEOUS [None]
